FAERS Safety Report 5258816-8 (Version None)
Quarter: 2007Q1

REPORT INFORMATION
  Report Type: 
  Country: None (occurrence: None)
  Receive Date: 20070306
  Receipt Date: 20070306
  Transmission Date: 20070707
  Serious: Yes (Congenital Anomaly)
  Sender: FDA-Public Use
  Company Number: None

PATIENT
  Age: 1 Day
  Sex: Male

DRUGS (1)
  1. KEPPRA [Suspect]
     Indication: EPILEPSY
     Dosage: 1000 MG BID PO
     Route: 048

REACTIONS (6)
  - ATRIAL SEPTAL DEFECT [None]
  - DRUG EXPOSURE BEFORE PREGNANCY [None]
  - HEART DISEASE CONGENITAL [None]
  - PATENT DUCTUS ARTERIOSUS [None]
  - URINARY TRACT MALFORMATION [None]
  - VENTRICULAR HYPERTROPHY [None]
